FAERS Safety Report 8161669-1 (Version None)
Quarter: 2012Q1

REPORT INFORMATION
  Report Type: 
  Country: None (occurrence: None)
  Receive Date: 20120224
  Receipt Date: 20120217
  Transmission Date: 20120608
  Serious: Yes (Hospitalization)
  Sender: FDA-Public Use
  Company Number: US-BAYER-201031208NA

PATIENT
  Age: 47 Year
  Sex: Female
  Weight: 76.19 kg

DRUGS (15)
  1. YAZ [Suspect]
     Indication: MENOPAUSAL SYMPTOMS
     Dosage: UNK UNK, QD
     Route: 048
     Dates: start: 20091001, end: 20091222
  2. ATROVENT [Concomitant]
     Indication: HYPERSENSITIVITY
  3. ZYRTEC [Concomitant]
     Indication: SINUSITIS
  4. FLONASE [Concomitant]
     Indication: SINUSITIS
  5. LOESTRIN 1.5/30 [Concomitant]
  6. ACIPHEX [Concomitant]
     Indication: HIATUS HERNIA
  7. EVAMIST [Concomitant]
  8. MULTI-VITAMIN [Concomitant]
     Dosage: UNK UNK, QD
  9. SINGULAIR [Concomitant]
     Indication: HYPERSENSITIVITY
     Dosage: DAILY DOSE 10 MG
  10. KYOLIC [Concomitant]
     Indication: BLOOD CHOLESTEROL INCREASED
  11. PRASUGREL [Concomitant]
     Indication: PRODUCT USED FOR UNKNOWN INDICATION
  12. BENADRYL [Concomitant]
     Indication: HYPERSENSITIVITY
     Dosage: UNK UNK, QD
  13. ZYRTEC [Concomitant]
     Indication: HYPERSENSITIVITY
     Dosage: UNK
     Dates: start: 20000101
  14. ACIPHEX [Concomitant]
     Indication: GASTROOESOPHAGEAL REFLUX DISEASE
  15. FLONASE [Concomitant]
     Indication: HYPERSENSITIVITY
     Dosage: UNK
     Dates: start: 20000101

REACTIONS (6)
  - LEUKOCYTOSIS [None]
  - HYPOKINESIA [None]
  - ACUTE MYOCARDIAL INFARCTION [None]
  - SINUS TACHYCARDIA [None]
  - EMOTIONAL DISTRESS [None]
  - HYPERGLYCAEMIA [None]
